FAERS Safety Report 10612967 (Version 2)
Quarter: 2014Q4

REPORT INFORMATION
  Report Type: Report from Study
  Country: AU (occurrence: AU)
  Receive Date: 20141127
  Receipt Date: 20141230
  Transmission Date: 20150529
  Serious: Yes (Hospitalization, Disabling, Other)
  Sender: FDA-Public Use
  Company Number: PHHY2014AU151649

PATIENT
  Age: 61 Year
  Sex: Male

DRUGS (6)
  1. SIMULECT [Suspect]
     Active Substance: BASILIXIMAB
     Indication: PROPHYLAXIS AGAINST TRANSPLANT REJECTION
     Dosage: 20 MG, QD
     Route: 042
     Dates: start: 20140128
  2. MYFORTIC [Suspect]
     Active Substance: MYCOPHENOLATE SODIUM
     Indication: RENAL TRANSPLANT
     Dosage: UNK UNK, BID
     Route: 048
     Dates: start: 20140124, end: 201407
  3. MYFORTIC [Suspect]
     Active Substance: MYCOPHENOLATE SODIUM
     Indication: PROPHYLAXIS AGAINST TRANSPLANT REJECTION
  4. SIMULECT [Suspect]
     Active Substance: BASILIXIMAB
     Indication: RENAL TRANSPLANT
     Dosage: 20 MG, UNK
     Route: 042
     Dates: start: 20140124
  5. TACROLIMUS. [Suspect]
     Active Substance: TACROLIMUS
     Indication: RENAL TRANSPLANT
     Dosage: UNK UNK, BID
     Route: 048
     Dates: start: 20140124, end: 20140724
  6. TACROLIMUS. [Suspect]
     Active Substance: TACROLIMUS
     Indication: PROPHYLAXIS AGAINST TRANSPLANT REJECTION

REACTIONS (41)
  - Tricuspid valve incompetence [Recovering/Resolving]
  - Transaminases increased [Unknown]
  - Tubulointerstitial nephritis [Unknown]
  - Kidney transplant rejection [Recovered/Resolved with Sequelae]
  - Urine output decreased [Unknown]
  - Dysphagia [Not Recovered/Not Resolved]
  - Diarrhoea [Not Recovered/Not Resolved]
  - Abdominal pain [Unknown]
  - Helicobacter infection [Recovering/Resolving]
  - Dyspnoea [Not Recovered/Not Resolved]
  - Pulmonary arterial pressure increased [Recovering/Resolving]
  - Right ventricular systolic pressure increased [Recovering/Resolving]
  - Renal impairment [Unknown]
  - Oedema [Unknown]
  - Complications of transplanted kidney [Recovered/Resolved]
  - Cytomegalovirus infection [Recovered/Resolved with Sequelae]
  - Cytomegalovirus duodenitis [Unknown]
  - Pneumonia klebsiella [Recovering/Resolving]
  - Vision blurred [Recovering/Resolving]
  - Toxicity to various agents [Recovering/Resolving]
  - Mitral valve incompetence [Unknown]
  - Exercise tolerance decreased [Unknown]
  - Lethargy [Unknown]
  - Delirium [Recovering/Resolving]
  - Left atrial dilatation [Recovering/Resolving]
  - Nephropathy toxic [Recovered/Resolved with Sequelae]
  - Nausea [Unknown]
  - Cytomegalovirus colitis [Unknown]
  - Infection [Unknown]
  - Arterial disorder [Unknown]
  - Chest pain [Unknown]
  - Post procedural haemorrhage [Recovered/Resolved]
  - Cytomegalovirus gastritis [Unknown]
  - Pyrexia [Unknown]
  - Confusional state [Unknown]
  - Left ventricular hypertrophy [Unknown]
  - Cytomegalovirus oesophagitis [Unknown]
  - Weight decreased [Not Recovered/Not Resolved]
  - Odynophagia [Unknown]
  - Cytomegalovirus chorioretinitis [Recovering/Resolving]
  - Diabetes mellitus [Unknown]

NARRATIVE: CASE EVENT DATE: 20140124
